FAERS Safety Report 16273340 (Version 2)
Quarter: 2019Q4

REPORT INFORMATION
  Report Type: Report from Study
  Country: CA (occurrence: CA)
  Receive Date: 20190506
  Receipt Date: 20191003
  Transmission Date: 20200122
  Serious: Yes (Death, Hospitalization, Other)
  Sender: FDA-Public Use
  Company Number: CA-TEVA-2019-CA-1046301

PATIENT
  Age: 75 Year
  Sex: Male

DRUGS (3)
  1. ELIQUIS [Concomitant]
     Active Substance: APIXABAN
     Indication: PRODUCT USED FOR UNKNOWN INDICATION
     Dosage: 2.5 MILLIGRAM DAILY;
     Route: 065
  2. SANDOSTATIN [Suspect]
     Active Substance: OCTREOTIDE ACETATE
     Indication: PANCREATIC NEUROENDOCRINE TUMOUR
     Route: 030
  3. BISOPROLOL [Suspect]
     Active Substance: BISOPROLOL
     Indication: PRODUCT USED FOR UNKNOWN INDICATION
     Dosage: 5 MILLIGRAM DAILY;
     Route: 065

REACTIONS (22)
  - Fall [Fatal]
  - Malignant neoplasm progression [Fatal]
  - Death [Fatal]
  - Arthralgia [Fatal]
  - Asthenia [Fatal]
  - Blood pressure systolic increased [Fatal]
  - Swelling [Fatal]
  - Weight decreased [Fatal]
  - Fatigue [Fatal]
  - Pericardial effusion [Fatal]
  - Musculoskeletal pain [Fatal]
  - Dyspnoea [Fatal]
  - Epistaxis [Fatal]
  - Herpes zoster [Fatal]
  - Pancreatic neuroendocrine tumour [Fatal]
  - Upper limb fracture [Fatal]
  - Blood iron decreased [Fatal]
  - Decreased appetite [Fatal]
  - Haemoglobin decreased [Fatal]
  - Injection site pain [Fatal]
  - Blood glucose increased [Fatal]
  - Confusional state [Fatal]
